FAERS Safety Report 16168583 (Version 1)
Quarter: 2019Q2

REPORT INFORMATION
  Report Type: Report from Study
  Country: FR (occurrence: FR)
  Receive Date: 20190408
  Receipt Date: 20190408
  Transmission Date: 20190711
  Serious: Yes (Hospitalization)
  Sender: FDA-Public Use
  Company Number: PHHY2018FR162222

PATIENT
  Age: 66 Year
  Sex: Male
  Weight: 73.9 kg

DRUGS (1)
  1. ADOPORT [Suspect]
     Active Substance: TACROLIMUS
     Indication: RENAL TRANSPLANT
     Dosage: 14 MG, UNK
     Route: 048
     Dates: start: 20181008

REACTIONS (4)
  - Red blood cells urine positive [Unknown]
  - Acute kidney injury [Recovered/Resolved]
  - White blood cells urine positive [Unknown]
  - Enterococcus test positive [Unknown]

NARRATIVE: CASE EVENT DATE: 20181106
